FAERS Safety Report 9831852 (Version 1)
Quarter: 2014Q1

REPORT INFORMATION
  Report Type: Spontaneous
  Country: US (occurrence: US)
  Receive Date: 20140121
  Receipt Date: 20140121
  Transmission Date: 20141002
  Serious: Yes (Hospitalization)
  Sender: FDA-Public Use
  Company Number: US-SA-2014SA007217

PATIENT
  Age: 53 Year
  Sex: Female

DRUGS (1)
  1. LUMIZYME [Suspect]
     Indication: GLYCOGEN STORAGE DISEASE TYPE II
     Dosage: DOSE : 32 VIALS
     Route: 042
     Dates: start: 20080918

REACTIONS (1)
  - Intestinal obstruction [Unknown]
